FAERS Safety Report 9432387 (Version 1)
Quarter: 2013Q3

REPORT INFORMATION
  Report Type: Spontaneous
  Country: CA (occurrence: CA)
  Receive Date: 20130731
  Receipt Date: 20130731
  Transmission Date: 20140515
  Serious: No
  Sender: FDA-Public Use
  Company Number: 2013SP002137

PATIENT
  Age: 48 Year
  Sex: Female

DRUGS (4)
  1. LATUDA [Suspect]
     Indication: BIPOLAR DISORDER
     Route: 048
     Dates: start: 20130713, end: 20130722
  2. LAMOTRIGINE [Concomitant]
     Route: 048
     Dates: start: 2010
  3. BUPROPION [Concomitant]
     Route: 048
     Dates: start: 2007
  4. TRAZODONE [Concomitant]
     Route: 048
     Dates: start: 2003

REACTIONS (6)
  - Hypersensitivity [Unknown]
  - Rash generalised [Unknown]
  - Rash pruritic [Unknown]
  - Lip swelling [Unknown]
  - Paraesthesia oral [Unknown]
  - Lip pruritus [Unknown]
